FAERS Safety Report 6422810-1 (Version None)
Quarter: 2009Q4

REPORT INFORMATION
  Report Type: 
  Country: None (occurrence: None)
  Receive Date: 20091102
  Receipt Date: 20091001
  Transmission Date: 20100525
  Serious: No
  Sender: FDA-Public Use
  Company Number: US-BAYER-200915215BCC

PATIENT
  Age: 71 Year
  Sex: Female
  Weight: 50 kg

DRUGS (6)
  1. ALEVE [Suspect]
     Indication: PAIN
     Dosage: UNIT DOSE: 220 MG
     Route: 048
     Dates: start: 20090901
  2. SIMVASTATIN [Concomitant]
     Route: 065
  3. ESTRADIOL [Concomitant]
     Route: 065
  4. ONE A DAY WOMAN VITAMIN [Concomitant]
     Route: 065
  5. MULTIVITAMIN [Concomitant]
     Route: 065
  6. ASPIRIN [Concomitant]
     Route: 065

REACTIONS (2)
  - FOREIGN BODY [None]
  - THROAT IRRITATION [None]
